FAERS Safety Report 13903515 (Version 5)
Quarter: 2018Q2

REPORT INFORMATION
  Report Type: Spontaneous
  Country: US (occurrence: US)
  Receive Date: 20170824
  Receipt Date: 20180620
  Transmission Date: 20180711
  Serious: No
  Sender: FDA-Public Use
  Company Number: US-PFIZER INC-2017366883

PATIENT
  Age: 59 Year
  Sex: Female
  Weight: 102 kg

DRUGS (1)
  1. METHOTREXATE SODIUM. [Suspect]
     Active Substance: METHOTREXATE SODIUM
     Dosage: UNK
     Dates: start: 200101, end: 201504

REACTIONS (2)
  - Vomiting [Unknown]
  - Nausea [Unknown]
